FAERS Safety Report 5281008-3 (Version None)
Quarter: 2007Q1

REPORT INFORMATION
  Report Type: 
  Country: None (occurrence: None)
  Receive Date: 20061229
  Receipt Date: 20060803
  Transmission Date: 20070707
  Serious: Yes (Other)
  Sender: FDA-Public Use
  Company Number: 2006UW15594

PATIENT
  Age: 60 Year
  Sex: Female

DRUGS (4)
  1. CRESTOR [Suspect]
     Dosage: 20 MG QD PO
     Route: 048
     Dates: start: 20060401
  2. BONIVA [Concomitant]
  3. DIGITALIS TAB [Concomitant]
  4. FOSAMAX [Concomitant]

REACTIONS (1)
  - ALOPECIA [None]
